FAERS Safety Report 25237167 (Version 1)
Quarter: 2025Q2

REPORT INFORMATION
  Report Type: Spontaneous
  Country: US (occurrence: US)
  Receive Date: 20250425
  Receipt Date: 20250425
  Transmission Date: 20250716
  Serious: No
  Sender: ROCHE
  Company Number: US-ROCHE-10000261774

PATIENT
  Age: 68 Year
  Sex: Male

DRUGS (1)
  1. ACTEMRA [Suspect]
     Active Substance: TOCILIZUMAB
     Indication: Giant cell arteritis
     Route: 050

REACTIONS (7)
  - Cough [Unknown]
  - Flushing [Unknown]
  - Ocular hyperaemia [Unknown]
  - Chest pain [Unknown]
  - Nausea [Unknown]
  - Tremor [Unknown]
  - Chills [Recovering/Resolving]
